FAERS Safety Report 4344422-6 (Version None)
Quarter: 2004Q2

REPORT INFORMATION
  Report Type: 
  Country: None (occurrence: None)
  Receive Date: 20040419
  Receipt Date: 20040409
  Transmission Date: 20050107
  Serious: Yes (Hospitalization)
  Sender: FDA-Public Use
  Company Number: 04P-087-0256908-00

PATIENT
  Age: 67 Year

DRUGS (5)
  1. TRICOR [Suspect]
     Indication: HYPERLIPIDAEMIA
     Dosage: 150 MG, 2 IN 1 D, ORAL
     Route: 048
     Dates: start: 20040305, end: 20040322
  2. DONEPEZIL HYDROCHLORIDE [Concomitant]
  3. AMLODIPINE BESYLATE [Concomitant]
  4. HALOPERIDOL [Concomitant]
  5. SENNA LEAF [Concomitant]

REACTIONS (2)
  - ERYTHEMA [None]
  - HEPATIC FUNCTION ABNORMAL [None]
